FAERS Safety Report 6507618-0 (Version None)
Quarter: 2009Q4

REPORT INFORMATION
  Report Type: 
  Country: None (occurrence: None)
  Receive Date: 20091221
  Receipt Date: 20090729
  Transmission Date: 20100525
  Serious: No
  Sender: FDA-Public Use
  Company Number: US-BRISTOL-MYERS SQUIBB COMPANY-14722151

PATIENT
  Age: 58 Year
  Sex: Female
  Weight: 80 kg

DRUGS (2)
  1. PRAVACHOL [Suspect]
     Route: 065
  2. AUGMENTIN [Suspect]
     Route: 065

REACTIONS (1)
  - LIVER FUNCTION TEST ABNORMAL [None]
